FAERS Safety Report 5695952-6 (Version None)
Quarter: 2008Q2

REPORT INFORMATION
  Report Type: 
  Country: None (occurrence: None)
  Receive Date: 20080407
  Receipt Date: 20080327
  Transmission Date: 20081010
  Serious: Yes (Hospitalization)
  Sender: FDA-Public Use
  Company Number: AU-AMGEN-US264515

PATIENT
  Sex: Male

DRUGS (12)
  1. PANITUMUMAB [Suspect]
     Indication: COLORECTAL CANCER
     Route: 042
     Dates: start: 20070904, end: 20080121
  2. PANITUMUMAB [Suspect]
     Route: 042
     Dates: start: 20080122, end: 20080122
  3. IRINOTECAN HCL [Suspect]
     Route: 042
     Dates: start: 20070409
  4. FLUOROURACIL [Suspect]
     Route: 040
     Dates: start: 20070409
  5. FLUOROURACIL [Suspect]
     Route: 041
     Dates: start: 20070409
  6. LEUCOVORIN CALCIUM [Concomitant]
     Route: 042
     Dates: start: 20070409
  7. NEXIUM [Concomitant]
     Route: 048
     Dates: start: 20061117, end: 20080130
  8. METAMUCIL [Concomitant]
     Route: 048
     Dates: start: 20070909
  9. DEXAMETHASONE [Concomitant]
     Route: 042
     Dates: start: 20070904
  10. GRANISETRON HCL [Concomitant]
     Route: 042
     Dates: start: 20070904
  11. ATROPINE [Concomitant]
     Route: 058
     Dates: start: 20070904
  12. PREDNISOLONE [Concomitant]
     Route: 048
     Dates: start: 20071114, end: 20080122

REACTIONS (2)
  - CELLULITIS [None]
  - DERMATITIS ACNEIFORM [None]
